FAERS Safety Report 9981313 (Version 4)
Quarter: 2014Q3

REPORT INFORMATION
  Report Type: Spontaneous
  Country: FR (occurrence: FR)
  Receive Date: 20140307
  Receipt Date: 20140815
  Transmission Date: 20150326
  Serious: Yes (Other)
  Sender: FDA-Public Use
  Company Number: FR-PFIZER INC-2014059294

PATIENT
  Age: 28 Year
  Sex: Female

DRUGS (8)
  1. DOXORUBICIN ACCORD [Suspect]
     Active Substance: DOXORUBICIN HYDROCHLORIDE
     Indication: HODGKIN^S DISEASE
     Dosage: 41.5 MG, CYCLIC
     Route: 042
     Dates: start: 20131025, end: 20140131
  2. BLEOMYCINE BELLON [Suspect]
     Active Substance: BLEOMYCIN SULFATE
     Indication: HODGKIN^S DISEASE
     Dosage: 12.5 MG, CYCLIC
     Route: 042
     Dates: start: 20131025, end: 20131220
  3. AMLOR [Suspect]
     Active Substance: AMLODIPINE BESYLATE
     Dosage: 10 MG, DAILY
     Route: 048
     Dates: end: 20140208
  4. VELBE [Suspect]
     Active Substance: VINBLASTINE SULFATE
     Indication: HODGKIN^S DISEASE
     Dosage: 10 MG, CYCLIC
     Route: 042
     Dates: start: 20131025, end: 20140131
  5. CORTANCYL [Concomitant]
     Active Substance: PREDNISONE
     Dosage: 15 MG, DAILY
     Route: 048
  6. CLIMASTON [Suspect]
     Active Substance: ESTRADIOL\PROGESTERONE
     Dosage: 1 DF, 2X/DAY
     Route: 048
     Dates: end: 20140208
  7. DACARBAZINE LIPOMED [Suspect]
     Active Substance: DACARBAZINE
     Indication: HODGKIN^S DISEASE
     Dosage: 200 MG, CYCLIC
     Route: 042
     Dates: start: 20131025, end: 20140131
  8. BLEOMYCINE BELLON [Suspect]
     Active Substance: BLEOMYCIN SULFATE
     Dosage: 9 MG, CYCLIC
     Route: 042
     Dates: start: 20140103, end: 20140131

REACTIONS (2)
  - Kidney transplant rejection [Unknown]
  - Pancreatitis [Recovering/Resolving]

NARRATIVE: CASE EVENT DATE: 201402
